FAERS Safety Report 9792042 (Version 1)
Quarter: 2013Q4

REPORT INFORMATION
  Report Type: Spontaneous
  Country: US (occurrence: None)
  Receive Date: 20131230
  Receipt Date: 20131230
  Transmission Date: 20140711
  Serious: Yes (Other)
  Sender: FDA-Public Use
  Company Number: 2013P1022126

PATIENT
  Sex: Male

DRUGS (1)
  1. OXYCODONE [Suspect]
     Indication: PAIN

REACTIONS (1)
  - Hypogonadism [None]
